FAERS Safety Report 10506900 (Version 2)
Quarter: 2014Q4

REPORT INFORMATION
  Report Type: Spontaneous
  Country: US (occurrence: US)
  Receive Date: 20141009
  Receipt Date: 20141030
  Transmission Date: 20150528
  Serious: Yes (Other)
  Sender: FDA-Public Use
  Company Number: US-JNJFOC-20141000081

PATIENT
  Age: 62 Year
  Sex: Female

DRUGS (1)
  1. DURAGESIC [Suspect]
     Active Substance: FENTANYL
     Indication: PRODUCT USED FOR UNKNOWN INDICATION
     Route: 062
     Dates: start: 2007

REACTIONS (20)
  - Drug tolerance [Not Recovered/Not Resolved]
  - Product quality issue [Unknown]
  - Drug dose omission [Unknown]
  - Application site pain [Unknown]
  - Wrong technique in drug usage process [Unknown]
  - Trigeminal neuralgia [Not Recovered/Not Resolved]
  - Poor quality drug administered [Unknown]
  - Contusion [Not Recovered/Not Resolved]
  - Ulcer haemorrhage [Not Recovered/Not Resolved]
  - Malaise [Not Recovered/Not Resolved]
  - Surgery [Unknown]
  - Breakthrough pain [Not Recovered/Not Resolved]
  - Drug ineffective [Unknown]
  - Brain neoplasm [Not Recovered/Not Resolved]
  - Scab [Unknown]
  - Fear [Not Recovered/Not Resolved]
  - Blindness unilateral [Not Recovered/Not Resolved]
  - Hemiplegia [Not Recovered/Not Resolved]
  - Pain in extremity [Not Recovered/Not Resolved]
  - Drug dispensing error [Unknown]

NARRATIVE: CASE EVENT DATE: 2014
